FAERS Safety Report 13239517 (Version 1)
Quarter: 2017Q1

REPORT INFORMATION
  Report Type: Spontaneous
  Country: IT (occurrence: IT)
  Receive Date: 20170216
  Receipt Date: 20170216
  Transmission Date: 20170428
  Serious: Yes (Death)
  Sender: FDA-Public Use
  Company Number: IT-JNJFOC-20170213706

PATIENT
  Age: 81 Year
  Sex: Female

DRUGS (15)
  1. NOVORAPID [Concomitant]
     Active Substance: INSULIN ASPART
     Dosage: 10 UI AT BREAKFAST AND 12 UI AT LUNCH AND 12 UI AT DINNER
     Route: 065
  2. POTASSIUM CANRENOATE [Concomitant]
     Active Substance: CANRENOATE POTASSIUM
     Route: 065
  3. INSULIN [Concomitant]
     Active Substance: INSULIN NOS
     Indication: DIABETES MELLITUS
     Route: 065
  4. XARELTO [Suspect]
     Active Substance: RIVAROXABAN
     Indication: ATRIAL FIBRILLATION
     Route: 048
     Dates: start: 20140118, end: 20170105
  5. CRESTOR [Concomitant]
     Active Substance: ROSUVASTATIN CALCIUM
     Route: 065
  6. NATECAL D [Concomitant]
     Active Substance: CALCIUM CARBONATE\CHOLECALCIFEROL
     Route: 065
  7. FUROSEMIDE. [Concomitant]
     Active Substance: FUROSEMIDE
     Route: 065
  8. ALLOPURINOL. [Concomitant]
     Active Substance: ALLOPURINOL
     Route: 065
  9. ALLOPURINOL. [Concomitant]
     Active Substance: ALLOPURINOL
     Route: 065
  10. LANSOX [Concomitant]
     Active Substance: LANSOPRAZOLE
     Route: 065
  11. LANTUS [Concomitant]
     Active Substance: INSULIN GLARGINE
     Route: 065
  12. FERRO-GRAD [Concomitant]
     Active Substance: FERROUS SULFATE
     Route: 065
  13. CARDICOR [Concomitant]
     Active Substance: BISOPROLOL
     Route: 065
  14. ACTONEL [Concomitant]
     Active Substance: RISEDRONATE SODIUM
     Route: 065
  15. POTASSIUM CANRENOATE [Concomitant]
     Active Substance: CANRENOATE POTASSIUM
     Route: 065

REACTIONS (5)
  - Cardiac failure acute [Fatal]
  - Acute hepatic failure [Fatal]
  - Acute kidney injury [Fatal]
  - Dyspnoea [Fatal]
  - Abdominal pain [Fatal]

NARRATIVE: CASE EVENT DATE: 20170105
